FAERS Safety Report 21429748 (Version 1)
Quarter: 2022Q4

REPORT INFORMATION
  Report Type: Spontaneous
  Country: None (occurrence: CN)
  Receive Date: 20221009
  Receipt Date: 20221009
  Transmission Date: 20230112
  Serious: Yes (Hospitalization)
  Sender: FDA-Public Use
  Company Number: CN-Jiangsu Hengrui Medicine Co., Ltd.-2133607

PATIENT
  Age: 62 Year
  Sex: Female

DRUGS (4)
  1. CYCLOPHOSPHAMIDE [Suspect]
     Active Substance: CYCLOPHOSPHAMIDE
     Indication: Vasculitis
     Route: 041
     Dates: end: 20220815
  2. METHYLPREDNISOLONE [Suspect]
     Active Substance: METHYLPREDNISOLONE
  3. CYCLOSPORINE [Suspect]
     Active Substance: CYCLOSPORINE
  4. LOSARTAN POTASSIUM AND HYDROCHLOROTHIAZIDE [Concomitant]
     Active Substance: HYDROCHLOROTHIAZIDE\LOSARTAN POTASSIUM

REACTIONS (2)
  - Kaposi^s sarcoma [Recovering/Resolving]
  - Product use in unapproved indication [Unknown]
